FAERS Safety Report 10736645 (Version 2)
Quarter: 2015Q1

REPORT INFORMATION
  Report Type: Report from Study
  Country: US (occurrence: US)
  Receive Date: 20150126
  Receipt Date: 20150203
  Transmission Date: 20150721
  Serious: No
  Sender: FDA-Public Use
  Company Number: US-PFIZER INC-2015025736

PATIENT
  Age: 89 Year
  Sex: Male

DRUGS (1)
  1. BOSULIF [Suspect]
     Active Substance: BOSUTINIB MONOHYDRATE
     Dosage: 300 MG, 1X/DAY (100 MG, THREE EVERY DAY)
     Dates: start: 20150109

REACTIONS (2)
  - Dyspepsia [Unknown]
  - Chest pain [Unknown]

NARRATIVE: CASE EVENT DATE: 201501
